FAERS Safety Report 25187938 (Version 1)
Quarter: 2025Q2

REPORT INFORMATION
  Report Type: Spontaneous
  Country: GR (occurrence: GR)
  Receive Date: 20250411
  Receipt Date: 20250411
  Transmission Date: 20250716
  Serious: Yes (Other)
  Sender: ORGANON
  Company Number: None

PATIENT
  Age: 67 Year
  Sex: Male

DRUGS (3)
  1. EZETIMIBE [Suspect]
     Active Substance: EZETIMIBE
  2. CRESTOR [Suspect]
     Active Substance: ROSUVASTATIN CALCIUM
  3. PITAVASTATIN [Suspect]
     Active Substance: PITAVASTATIN

REACTIONS (3)
  - Myalgia [Recovered/Resolved]
  - Chest pain [Recovered/Resolved]
  - Transaminases increased [Recovered/Resolved]
